FAERS Safety Report 7032143-0 (Version None)
Quarter: 2010Q4

REPORT INFORMATION
  Report Type: 
  Country: None (occurrence: None)
  Receive Date: 20101007
  Receipt Date: 20101005
  Transmission Date: 20110411
  Serious: Yes (Hospitalization)
  Sender: FDA-Public Use
  Company Number: US-BRISTOL-MYERS SQUIBB COMPANY-14854293

PATIENT
  Age: 68 Year
  Sex: Female
  Weight: 61 kg

DRUGS (4)
  1. CARBOPLATIN [Suspect]
     Indication: NON-SMALL CELL LUNG CANCER
     Dosage: 1 D.F= 141 MG;RANDOMIZEDTORECEIVE AUC2/WK OVER1HR 1/WEEK FOR 6 WEEKS,4TH COURSE.RECINF26OCT09.
     Route: 042
     Dates: start: 20091005
  2. TAXOL [Suspect]
     Indication: NON-SMALL CELL LUNG CANCER
     Dosage: 45MG/M2 OVER 1HR 1/WEEK FOR 6 WEEKS,STA DATE OF 4TH COURSE(TOT DOSE RECEIVED-73MG):RECE INF 26OCT09
     Route: 042
     Dates: start: 20091005
  3. RADIATION THERAPY [Suspect]
     Indication: NON-SMALL CELL LUNG CANCER
     Dosage: 1DF=2535CGY, EXTERNAL BEAM 3D, LAST RECEIVED DATE:23OCT09;NO: OF FRACTIONS:15,ELAPSED DAYS:21
     Dates: start: 20091005
  4. MAXZIDE [Suspect]
     Route: 048

REACTIONS (4)
  - FACIAL BONES FRACTURE [None]
  - FALL [None]
  - SUBARACHNOID HAEMORRHAGE [None]
  - SYNCOPE [None]
